FAERS Safety Report 9825860 (Version 1)
Quarter: 2014Q1

REPORT INFORMATION
  Report Type: Spontaneous
  Country: US (occurrence: US)
  Receive Date: 20140117
  Receipt Date: 20140117
  Transmission Date: 20141002
  Serious: No
  Sender: FDA-Public Use
  Company Number: US-BAYER-2014-007429

PATIENT
  Age: 64 Year
  Sex: Female

DRUGS (2)
  1. CLIMARA [Suspect]
     Indication: POSTMENOPAUSE
     Dosage: 0.037 MG/24HR, UNK
     Route: 062
     Dates: start: 20131107
  2. LOSARTAN POTASSIUM W/HYDROCHLOROTHIAZIDE [Concomitant]
     Indication: HYPERTENSION
     Dosage: 1 DF, QD
     Dates: start: 2010

REACTIONS (3)
  - Insomnia [Not Recovered/Not Resolved]
  - Product adhesion issue [None]
  - Product adhesion issue [None]
